FAERS Safety Report 26170949 (Version 1)
Quarter: 2025Q4

REPORT INFORMATION
  Report Type: Spontaneous
  Country: US (occurrence: US)
  Receive Date: 20251217
  Receipt Date: 20251217
  Transmission Date: 20260117
  Serious: No
  Sender: SANOFI AVENTIS
  Company Number: US-SA-2025SA373919

PATIENT
  Sex: Male
  Weight: 110.45 kg

DRUGS (4)
  1. DUPIXENT [Suspect]
     Active Substance: DUPILUMAB
     Indication: Dermatitis atopic
     Dosage: 300 MG, QOW
     Route: 058
  2. BUPROPION [Concomitant]
     Active Substance: BUPROPION
  3. CITALOPRAM [Concomitant]
     Active Substance: CITALOPRAM
  4. RINVOQ [Concomitant]
     Active Substance: UPADACITINIB

REACTIONS (1)
  - Therapeutic response decreased [Unknown]
